FAERS Safety Report 9455138 (Version 1)
Quarter: 2013Q3

REPORT INFORMATION
  Report Type: Spontaneous
  Country: US (occurrence: US)
  Receive Date: 20130813
  Receipt Date: 20130813
  Transmission Date: 20140515
  Serious: Yes (Hospitalization, Other)
  Sender: FDA-Public Use
  Company Number: US-AMGEN-USASP2013055543

PATIENT
  Age: 43 Year
  Sex: Female

DRUGS (3)
  1. ENBREL [Suspect]
     Indication: PSORIASIS
     Dosage: UNK MG, TWICE WEEKLY
     Route: 065
     Dates: start: 20061006
  2. ENBREL [Suspect]
     Indication: OSTEOARTHRITIS
  3. METHOTREXATE [Concomitant]
     Dosage: UNK

REACTIONS (10)
  - Intervertebral disc protrusion [Recovered/Resolved]
  - Pain in extremity [Recovered/Resolved]
  - Tooth abscess [Recovered/Resolved]
  - Hypoacusis [Not Recovered/Not Resolved]
  - Drug ineffective [Recovered/Resolved]
  - Fatigue [Recovered/Resolved]
  - Ear infection [Recovered/Resolved]
  - Psoriasis [Not Recovered/Not Resolved]
  - Localised infection [Recovered/Resolved]
  - Injection site pain [Recovered/Resolved]
